FAERS Safety Report 4807135-X (Version None)
Quarter: 2005Q4

REPORT INFORMATION
  Report Type: 
  Country: None (occurrence: None)
  Receive Date: 20051024
  Receipt Date: 20050901
  Transmission Date: 20060501
  Serious: Yes (Other)
  Sender: FDA-Public Use
  Company Number: 2005AC01292

PATIENT
  Age: 488 Month
  Sex: Female
  Weight: 67 kg

DRUGS (4)
  1. SEROQUEL [Suspect]
     Indication: BIPOLAR I DISORDER
     Route: 048
     Dates: start: 20041101
  2. DEPAKENE [Concomitant]
     Indication: BIPOLAR I DISORDER
     Route: 048
     Dates: start: 20020101
  3. MANIPREX [Concomitant]
     Indication: BIPOLAR I DISORDER
     Route: 048
     Dates: start: 19981201
  4. SEROXAT [Concomitant]
     Indication: BIPOLAR I DISORDER
     Route: 048
     Dates: start: 20041201

REACTIONS (1)
  - BULIMIA NERVOSA [None]
